FAERS Safety Report 6288503-9 (Version None)
Quarter: 2009Q3

REPORT INFORMATION
  Report Type: 
  Country: None (occurrence: None)
  Receive Date: 20090729
  Receipt Date: 20090717
  Transmission Date: 20100115
  Serious: Yes (Hospitalization)
  Sender: FDA-Public Use
  Company Number: FR-GENENTECH-287310

PATIENT
  Sex: Female

DRUGS (13)
  1. MABTHERA [Suspect]
     Indication: DRUG USE FOR UNKNOWN INDICATION
     Dosage: 1 G, Q4W
     Route: 042
     Dates: start: 20080925, end: 20081017
  2. AMOXICILLIN TRIHYDRATE [Suspect]
     Indication: LUNG DISORDER
     Dosage: 1 G, BID
     Route: 048
     Dates: start: 20090119, end: 20090428
  3. ROVAMYCINE [Suspect]
     Indication: LUNG DISORDER
     Dosage: 3 MIU, TID
     Route: 048
     Dates: start: 20090404, end: 20090428
  4. CORTANCYL [Concomitant]
     Indication: DRUG USE FOR UNKNOWN INDICATION
     Dosage: UNK
     Dates: start: 19900101
  5. IMUREL [Concomitant]
     Indication: DRUG USE FOR UNKNOWN INDICATION
     Dosage: UNK
     Dates: start: 20041201, end: 20090503
  6. PNEUMOCOCCAL 23-VALENT VACCINE [Concomitant]
     Indication: DRUG USE FOR UNKNOWN INDICATION
     Dosage: UNK
     Dates: start: 20081016, end: 20081016
  7. ELISOR [Concomitant]
     Indication: DRUG USE FOR UNKNOWN INDICATION
     Dosage: UNK
  8. LEVOTHYROX [Concomitant]
     Indication: DRUG USE FOR UNKNOWN INDICATION
  9. KARDEGIC [Concomitant]
     Indication: DRUG USE FOR UNKNOWN INDICATION
  10. SOLU-MEDROL [Concomitant]
     Indication: DRUG USE FOR UNKNOWN INDICATION
     Dosage: UNK
     Dates: start: 20080925, end: 20080925
  11. DTAP VACCINE [Concomitant]
     Indication: DRUG USE FOR UNKNOWN INDICATION
     Dosage: UNK
     Dates: start: 20081016, end: 20081016
  12. RULID [Concomitant]
     Indication: DRUG USE FOR UNKNOWN INDICATION
     Dosage: UNK
     Dates: start: 20090326, end: 20090330
  13. ZITHROMAX [Concomitant]
     Indication: DRUG USE FOR UNKNOWN INDICATION
     Dosage: UNK
     Dates: start: 20090331

REACTIONS (1)
  - AGRANULOCYTOSIS [None]
